FAERS Safety Report 6406190-3 (Version None)
Quarter: 2009Q4

REPORT INFORMATION
  Report Type: 
  Country: None (occurrence: None)
  Receive Date: 20091019
  Receipt Date: 20091005
  Transmission Date: 20100525
  Serious: Yes (Other)
  Sender: FDA-Public Use
  Company Number: TR-MYLANLABS-2009S1017335

PATIENT
  Age: 32 Year
  Sex: Female

DRUGS (2)
  1. METOCLOPRAMIDE [Interacting]
     Indication: MIGRAINE
     Dosage: 10MG
     Route: 042
  2. ESCITALOPRAM [Suspect]
     Indication: DEPRESSION
     Dosage: 10 MG/DAY

REACTIONS (3)
  - DRUG INTERACTION [None]
  - OCULOGYRIC CRISIS [None]
  - SEROTONIN SYNDROME [None]
